FAERS Safety Report 21614900 (Version 1)
Quarter: 2022Q4

REPORT INFORMATION
  Report Type: Spontaneous
  Country: US (occurrence: US)
  Receive Date: 20221118
  Receipt Date: 20221118
  Transmission Date: 20230113
  Serious: No
  Sender: FDA-Public Use
  Company Number: US-BAYER-2022A154397

PATIENT
  Age: 78 Year
  Sex: Male

DRUGS (1)
  1. GADAVIST [Suspect]
     Active Substance: GADOBUTROL
     Indication: Investigation
     Dosage: 5 ML, ONCE
     Route: 042

REACTIONS (2)
  - Pruritus [None]
  - Rash papular [None]
